FAERS Safety Report 8611568-3 (Version None)
Quarter: 2012Q3

REPORT INFORMATION
  Report Type: 
  Country: None (occurrence: None)
  Receive Date: 20120822
  Receipt Date: 20120815
  Transmission Date: 20120928
  Serious: Yes (Other)
  Sender: FDA-Public Use
  Company Number: PHHY2012IT070644

PATIENT
  Age: 33 Day
  Sex: Female

DRUGS (3)
  1. RANITIDINE [Concomitant]
     Indication: GASTROOESOPHAGEAL REFLUX DISEASE
  2. PROPRANOLOL [Suspect]
     Dosage: 2 MG/KG, DAILY
     Route: 048
  3. DOMPERIDONE [Concomitant]
     Indication: GASTROOESOPHAGEAL REFLUX DISEASE

REACTIONS (4)
  - TUMOUR LYSIS SYNDROME [None]
  - HYPERPHOSPHATAEMIA [None]
  - ELECTROLYTE IMBALANCE [None]
  - HYPERKALAEMIA [None]
